FAERS Safety Report 5383017-2 (Version None)
Quarter: 2007Q2

REPORT INFORMATION
  Report Type: 
  Country: None (occurrence: None)
  Receive Date: 20070629
  Receipt Date: 20070206
  Transmission Date: 20071010
  Serious: Yes (Hospitalization)
  Sender: FDA-Public Use
  Company Number: US200612004069

PATIENT
  Age: 20 Year
  Sex: Male

DRUGS (1)
  1. HUMALOG [Suspect]
     Indication: BLOOD GLUCOSE INCREASED
     Dates: start: 19980101

REACTIONS (8)
  - ASTHENIA [None]
  - BLOOD GLUCOSE INCREASED [None]
  - CONFUSIONAL STATE [None]
  - GAIT DISTURBANCE [None]
  - MALAISE [None]
  - PALLOR [None]
  - VOMITING [None]
  - WEIGHT DECREASED [None]
